FAERS Safety Report 7122636-X (Version None)
Quarter: 2010Q4

REPORT INFORMATION
  Report Type: 
  Country: None (occurrence: None)
  Receive Date: 20101124
  Receipt Date: 20101025
  Transmission Date: 20110411
  Serious: Yes (Other)
  Sender: FDA-Public Use
  Company Number: BR-GENENTECH-305076

PATIENT
  Sex: Female
  Weight: 65.8 kg

DRUGS (13)
  1. RITUXIMAB (MABTHERA) [Suspect]
     Indication: SYSTEMIC LUPUS ERYTHEMATOSUS
     Dosage: 1000 MG/ML, UNK
     Route: 042
     Dates: start: 20090708
  2. RITUXIMAB [Suspect]
     Dosage: 1000 MG/ML, UNK
     Route: 042
     Dates: start: 20101020
  3. SOLU-MEDROL [Suspect]
     Indication: PREMEDICATION
     Dosage: UNK
     Route: 065
     Dates: start: 20101020
  4. PREDSIM [Concomitant]
     Indication: PRODUCT USED FOR UNKNOWN INDICATION
     Dosage: 10 MG, UNK
  5. PREDSIM [Concomitant]
     Dosage: 5 MG, UNK
  6. LASIX [Concomitant]
     Indication: PRODUCT USED FOR UNKNOWN INDICATION
     Dosage: 40 MG, UNK
  7. SOTACOR [Concomitant]
     Indication: PRODUCT USED FOR UNKNOWN INDICATION
     Dosage: 120 MG, UNK
  8. AZATHIOPRINE [Concomitant]
     Indication: PRODUCT USED FOR UNKNOWN INDICATION
     Dosage: UNK
  9. CALCIUM [Concomitant]
     Indication: PRODUCT USED FOR UNKNOWN INDICATION
     Dosage: UNK
  10. VIT D [Concomitant]
     Indication: PRODUCT USED FOR UNKNOWN INDICATION
     Dosage: UNK
  11. POLARAMINE [Concomitant]
     Indication: PRODUCT USED FOR UNKNOWN INDICATION
     Dosage: UNK
     Dates: start: 20101020
  12. PHENERGAN [Concomitant]
     Indication: PREMEDICATION
     Dosage: UNK
     Dates: start: 20101020
  13. ARADOIS [Concomitant]
     Indication: PRODUCT USED FOR UNKNOWN INDICATION
     Dosage: UNK
     Dates: end: 20100101

REACTIONS (16)
  - AGGRESSION [None]
  - BLOOD PRESSURE DECREASED [None]
  - CARDIOVASCULAR DISORDER [None]
  - DECREASED APPETITE [None]
  - DEPRESSION [None]
  - EATING DISORDER [None]
  - ERYTHEMA [None]
  - ILL-DEFINED DISORDER [None]
  - MALAISE [None]
  - MIGRAINE [None]
  - NAUSEA [None]
  - OEDEMA PERIPHERAL [None]
  - PAIN [None]
  - PHARYNGEAL INFLAMMATION [None]
  - PROTEINURIA [None]
  - RHINITIS [None]
